FAERS Safety Report 7970310-X (Version None)
Quarter: 2011Q4

REPORT INFORMATION
  Report Type: 
  Country: None (occurrence: None)
  Receive Date: 20111212
  Receipt Date: 20111202
  Transmission Date: 20120403
  Serious: Yes (Life-Threatening, Hospitalization)
  Sender: FDA-Public Use
  Company Number: FR-BAXTER-2011BH038584

PATIENT
  Age: 65 Year
  Sex: Female

DRUGS (6)
  1. UROMITEXAN [Concomitant]
     Indication: PRODUCT USED FOR UNKNOWN INDICATION
     Route: 065
     Dates: start: 20111013, end: 20111015
  2. IFOSFAMIDE [Suspect]
     Indication: OVARIAN CANCER
     Route: 042
     Dates: start: 20111013, end: 20111015
  3. CORTICOSTEROIDS [Concomitant]
     Indication: ANTIEMETIC SUPPORTIVE CARE
     Route: 065
     Dates: start: 20111013
  4. DOXORUBICIN HCL [Suspect]
     Route: 042
     Dates: start: 20110919, end: 20110919
  5. DOXORUBICIN HCL [Suspect]
     Indication: OVARIAN CANCER
     Route: 042
     Dates: start: 20111013, end: 20111013
  6. ONDANSETRON [Concomitant]
     Indication: ANTIEMETIC SUPPORTIVE CARE
     Route: 065
     Dates: start: 20111013

REACTIONS (3)
  - ENCEPHALOPATHY [None]
  - BONE MARROW FAILURE [None]
  - MUCOSAL INFLAMMATION [None]
